FAERS Safety Report 6536503-3 (Version None)
Quarter: 2010Q1

REPORT INFORMATION
  Report Type: 
  Country: None (occurrence: None)
  Receive Date: 20100105
  Receipt Date: 20091228
  Transmission Date: 20100710
  Serious: Yes (Life-Threatening, Hospitalization)
  Sender: FDA-Public Use
  Company Number: 2009029879

PATIENT
  Age: 87 Year
  Sex: Male

DRUGS (1)
  1. MODAFINIL [Suspect]
     Dosage: 100 MG (100 MG, 1 IN 1 D), ORAL
     Route: 048
     Dates: start: 20090910, end: 20091110

REACTIONS (8)
  - ANXIETY [None]
  - ASPHYXIA [None]
  - ASTHENIA [None]
  - FALL [None]
  - MUSCULOSKELETAL PAIN [None]
  - NERVOUSNESS [None]
  - SPINAL DISORDER [None]
  - SUICIDE ATTEMPT [None]
